FAERS Safety Report 8817976 (Version 1)
Quarter: 2012Q4

REPORT INFORMATION
  Report Type: 
  Country: US (occurrence: US)
  Receive Date: 20121001
  Receipt Date: 20121001
  Transmission Date: 20130627
  Serious: No
  Sender: FDA-Public Use
  Company Number: US-SANOFI-AVENTIS-2012SA000455

PATIENT
  Age: 53 Year
  Sex: Male

DRUGS (3)
  1. ELIGARD [Suspect]
     Route: 065
  2. ELIGARD [Suspect]
     Route: 065
  3. ELIGARD [Suspect]
     Route: 065

REACTIONS (2)
  - Injection site vesicles [Unknown]
  - Injection site pain [Unknown]
